FAERS Safety Report 11278295 (Version 1)
Quarter: 2015Q3

REPORT INFORMATION
  Report Type: Spontaneous
  Country: BR (occurrence: BR)
  Receive Date: 20150717
  Receipt Date: 20150717
  Transmission Date: 20151125
  Serious: Yes (Other)
  Sender: FDA-Public Use
  Company Number: BR-ROCHE-1608073

PATIENT
  Sex: Female
  Weight: 70 kg

DRUGS (5)
  1. RIVOTRIL [Suspect]
     Active Substance: CLONAZEPAM
     Indication: NEUROPATHY PERIPHERAL
     Route: 065
     Dates: start: 2011
  2. GABAPENTIN. [Concomitant]
     Active Substance: GABAPENTIN
     Indication: NEUROPATHY PERIPHERAL
     Route: 065
     Dates: start: 2011
  3. RIVOTRIL [Suspect]
     Active Substance: CLONAZEPAM
     Dosage: PT REPORTS DOCTOR PRESCRIBES RIVOTRIL 2MG WHICH HE RECOMMENDS BREAKING INTO FOUR PARTS
     Route: 065
  4. VALIUM [Suspect]
     Active Substance: DIAZEPAM
     Indication: PRODUCT USED FOR UNKNOWN INDICATION
     Route: 065
  5. AMYTRIL [Concomitant]
     Active Substance: AMITRIPTYLINE HYDROCHLORIDE
     Indication: NEUROPATHY PERIPHERAL
     Route: 065
     Dates: start: 2011

REACTIONS (4)
  - Insomnia [Unknown]
  - Drug dose omission [Unknown]
  - Brain hypoxia [Unknown]
  - Back pain [Unknown]

NARRATIVE: CASE EVENT DATE: 2012
